FAERS Safety Report 5473824-X (Version None)
Quarter: 2007Q4

REPORT INFORMATION
  Report Type: 
  Country: None (occurrence: None)
  Receive Date: 20071001
  Receipt Date: 20070926
  Transmission Date: 20080405
  Serious: Yes (Hospitalization)
  Sender: FDA-Public Use
  Company Number: FR-MERCK-0709FRA00069

PATIENT
  Age: 88 Year
  Sex: Female

DRUGS (7)
  1. PRIMAXIN [Suspect]
     Route: 041
     Dates: end: 20070303
  2. FLUINDIONE [Suspect]
     Indication: ATRIAL FIBRILLATION
     Route: 048
     Dates: end: 20070303
  3. AMIODARONE HYDROCHLORIDE [Suspect]
     Indication: ATRIAL FIBRILLATION
     Route: 048
  4. PAROXETINE HYDROCHLORIDE [Suspect]
     Indication: DEPRESSION
     Route: 048
  5. FOLIC ACID [Suspect]
     Indication: ANAEMIA
     Route: 048
  6. OMEPRAZOLE SODIUM [Suspect]
     Route: 051
  7. URSODIOL [Suspect]
     Indication: CHOLELITHIASIS
     Route: 048

REACTIONS (1)
  - COLONIC HAEMATOMA [None]
